FAERS Safety Report 5054131-6 (Version None)
Quarter: 2006Q3

REPORT INFORMATION
  Report Type: 
  Country: None (occurrence: None)
  Receive Date: 20060713
  Receipt Date: 20060629
  Transmission Date: 20061208
  Serious: Yes (Hospitalization)
  Sender: FDA-Public Use
  Company Number: 2006JP001194

PATIENT
  Age: 25 Year
  Sex: Female
  Weight: 33 kg

DRUGS (13)
  1. TACROLIMUS CAPSULES(TACROLIMUS) CAPSULE [Suspect]
     Indication: RHEUMATOID ARTHRITIS
     Dosage: 1 MG, UID/QD, ORAL; 2 MG UID/QD, ORAL; 54 DF D, ORAL
     Route: 048
     Dates: start: 20060112, end: 20060208
  2. TACROLIMUS CAPSULES(TACROLIMUS) CAPSULE [Suspect]
     Indication: RHEUMATOID ARTHRITIS
     Dosage: 1 MG, UID/QD, ORAL; 2 MG UID/QD, ORAL; 54 DF D, ORAL
     Route: 048
     Dates: start: 20060209, end: 20060424
  3. TACROLIMUS CAPSULES(TACROLIMUS) CAPSULE [Suspect]
     Indication: RHEUMATOID ARTHRITIS
     Dosage: 1 MG, UID/QD, ORAL; 2 MG UID/QD, ORAL; 54 DF D, ORAL
     Route: 048
     Dates: start: 20060424, end: 20060424
  4. RHEUMATREX [Suspect]
     Indication: RHEUMATOID ARTHRITIS
     Dosage: 16 DF, D, ORAL
     Route: 048
     Dates: start: 20060424, end: 20060424
  5. VOLTAREN [Suspect]
     Indication: RHEUMATOID ARTHRITIS
     Dosage: 25 MG, UID/QD, RECTAL
     Route: 054
  6. VOLTAREN [Suspect]
     Indication: RHEUMATOID ARTHRITIS
     Dosage: 183 DF, D, ORAL
     Route: 048
     Dates: start: 20060424, end: 20060424
  7. LENDORMIN (BROTIZOLAM) TABLET [Concomitant]
  8. PREDNISOLONE [Concomitant]
  9. RIMATIL (BUCILLAMINE) TABLET [Concomitant]
  10. ETODOLAC [Concomitant]
  11. APLACE (TORXIPIDE) TABLET [Concomitant]
  12. ACINON (NIZATIDINE) CAPSULE [Concomitant]
  13. ALLEGRA (FEXOFENADINE HYDROCHLORIDE) TABLET [Concomitant]

REACTIONS (7)
  - CONDITION AGGRAVATED [None]
  - DEPRESSION [None]
  - MENTAL DISORDER [None]
  - MULTIPLE DRUG OVERDOSE INTENTIONAL [None]
  - PERSECUTORY DELUSION [None]
  - SUICIDE ATTEMPT [None]
  - VOMITING [None]
